FAERS Safety Report 15572361 (Version 1)
Quarter: 2018Q4

REPORT INFORMATION
  Report Type: Spontaneous
  Country: US (occurrence: US)
  Receive Date: 20181031
  Receipt Date: 20181031
  Transmission Date: 20190205
  Serious: Yes (Hospitalization, Other)
  Sender: FDA-Public Use
  Company Number: None

PATIENT
  Age: 66 Year
  Sex: Female
  Weight: 67.59 kg

DRUGS (11)
  1. BRAFTOVI [Suspect]
     Active Substance: ENCORAFENIB
     Indication: MALIGNANT MELANOMA
     Route: 048
     Dates: start: 20180723, end: 20181031
  2. MEKTOVI [Suspect]
     Active Substance: BINIMETINIB
     Indication: MALIGNANT MELANOMA
     Route: 048
     Dates: start: 20180723, end: 20181031
  3. SIMVASTATIN 20MG [Concomitant]
     Active Substance: SIMVASTATIN
  4. ELIQUIS [Concomitant]
     Active Substance: APIXABAN
  5. METOPROLOL 50MG [Concomitant]
     Active Substance: METOPROLOL
  6. MAGNESIUM OXIDE 400MG [Concomitant]
  7. POTASSIUM CHLORIDE 20MEQ [Concomitant]
  8. TACROLIMUS 1MG [Concomitant]
     Active Substance: TACROLIMUS
  9. LASIX 20MG [Concomitant]
  10. MELATONIN 3MG [Concomitant]
  11. LEVOTHYROXINE 25MCG [Concomitant]
     Active Substance: LEVOTHYROXINE

REACTIONS (4)
  - Vitreous floaters [None]
  - Vision blurred [None]
  - Renal disorder [None]
  - Therapy change [None]

NARRATIVE: CASE EVENT DATE: 20180821
